FAERS Safety Report 8175239-2 (Version None)
Quarter: 2012Q1

REPORT INFORMATION
  Report Type: 
  Country: None (occurrence: None)
  Receive Date: 20120229
  Receipt Date: 20120229
  Transmission Date: 20120608
  Serious: Yes (Other)
  Sender: FDA-Public Use
  Company Number: US-PFIZER INC-2011197827

PATIENT
  Sex: Female

DRUGS (11)
  1. DEPAKOTE [Concomitant]
     Indication: BIPOLAR DISORDER
     Dosage: UNK
     Dates: start: 20060101
  2. RISPERDAL [Concomitant]
     Indication: DEPRESSION
  3. CHANTIX [Suspect]
     Indication: SMOKING CESSATION THERAPY
     Dosage: STARTING PACK AND 1 MG CONTINUING MONTH PACK
     Dates: start: 20081219, end: 20090101
  4. ACETAMINOPHEN AND HYDROCODONE BITARTRATE [Concomitant]
     Indication: PAIN
     Dosage: UNK
     Dates: start: 20000101
  5. METRONIDAZOLE [Concomitant]
     Indication: ANTIBIOTIC THERAPY
     Dosage: UNK
     Dates: start: 20070101
  6. TORADOL [Concomitant]
     Indication: PAIN
     Dosage: UNK
     Dates: start: 20070101, end: 20090101
  7. RISPERDAL [Concomitant]
     Indication: BIPOLAR DISORDER
  8. RISPERDAL [Concomitant]
     Indication: BORDERLINE PERSONALITY DISORDER
     Dosage: UNK
     Dates: start: 20060101
  9. DEPAKOTE [Concomitant]
     Indication: DEPRESSION
  10. RISPERDAL [Concomitant]
     Indication: INSOMNIA
  11. BUTALBITAL AND CAFFEINE AND PARACETAMOL [Concomitant]
     Indication: HEADACHE
     Dosage: UNK
     Dates: start: 20070101, end: 20100101

REACTIONS (3)
  - BIPOLAR DISORDER [None]
  - SUICIDAL IDEATION [None]
  - DEPRESSION [None]
